FAERS Safety Report 4507790-8 (Version None)
Quarter: 2004Q4

REPORT INFORMATION
  Report Type: 
  Country: None (occurrence: None)
  Receive Date: 20041018
  Receipt Date: 20040811
  Transmission Date: 20050328
  Serious: No
  Sender: FDA-Public Use
  Company Number: 207162

PATIENT
  Age: 45 Year
  Sex: Female
  Weight: 81.6 kg

DRUGS (12)
  1. XOLAIR [Suspect]
     Indication: ASTHMA
     Dosage: 300 MG, Q4W, INTRAMUSCULAR
     Route: 030
     Dates: start: 20031016, end: 20040513
  2. XOLAIR [Suspect]
  3. LEVOXYL [Concomitant]
  4. HYDROCHLOROTHIAZIDE [Concomitant]
  5. TOPROL-XL [Concomitant]
  6. FORADIL [Concomitant]
  7. FLOVENT [Concomitant]
  8. SINGULAIR [Concomitant]
  9. PREVACID [Concomitant]
  10. FERROUS SULFATE TAB [Concomitant]
  11. ANTIDEPRESSANT NOS (ANTIDERESSANT NOS) [Concomitant]
  12. SSKI (POTASSIUM IODIDE) [Concomitant]

REACTIONS (1)
  - MORPHOEA [None]
